FAERS Safety Report 10876561 (Version 1)
Quarter: 2015Q1

REPORT INFORMATION
  Report Type: Spontaneous
  Country: US (occurrence: US)
  Receive Date: 20150301
  Receipt Date: 20150301
  Transmission Date: 20150721
  Serious: Yes (Other)
  Sender: FDA-Public Use
  Company Number: US-TEVA-543344USA

PATIENT
  Age: 34 Year
  Sex: Female
  Weight: 59.02 kg

DRUGS (3)
  1. COPAXONE [Suspect]
     Active Substance: GLATIRAMER ACETATE
     Indication: MULTIPLE SCLEROSIS
     Dates: start: 201409, end: 20150206
  2. ORTHO TRICYCLEN [Concomitant]
     Indication: CONTRACEPTIVE CAP
  3. DEXEDRINE [Concomitant]
     Active Substance: DEXTROAMPHETAMINE SULFATE
     Indication: FATIGUE

REACTIONS (4)
  - Protein urine [Unknown]
  - Hypertension [Not Recovered/Not Resolved]
  - Chest pain [Recovered/Resolved]
  - Therapy change [Recovered/Resolved]

NARRATIVE: CASE EVENT DATE: 201410
